FAERS Safety Report 5839978-8 (Version None)
Quarter: 2008Q3

REPORT INFORMATION
  Report Type: 
  Country: None (occurrence: None)
  Receive Date: 20080811
  Receipt Date: 20080801
  Transmission Date: 20090109
  Serious: Yes (Other)
  Sender: FDA-Public Use
  Company Number: CA-JNJFOC-20080303891

PATIENT
  Sex: Male
  Weight: 68.5 kg

DRUGS (3)
  1. REMICADE [Suspect]
     Dosage: INITIAL INFUSION, IN 250 ML OF NORMAL SALINE
     Route: 042
  2. REMICADE [Suspect]
     Indication: PSORIATIC ARTHROPATHY
     Dosage: INITIAL INFUSION, IN 250 ML OF NORMAL SALINE
     Route: 042
  3. UNSPECIFIED MEDICATION [Concomitant]
     Indication: PREMEDICATION
     Route: 048

REACTIONS (3)
  - CHILLS [None]
  - DIZZINESS [None]
  - PYREXIA [None]
